FAERS Safety Report 9016201 (Version 1)
Quarter: 2013Q1

REPORT INFORMATION
  Report Type: Spontaneous
  Country: DE (occurrence: DE)
  Receive Date: 20130116
  Receipt Date: 20130116
  Transmission Date: 20140127
  Serious: Yes (Hospitalization, Other)
  Sender: FDA-Public Use
  Company Number: DE-B.I. PHARMACEUTICALS,INC./RIDGEFIELD-2013-DE-00054DE

PATIENT
  Age: 82 Year
  Sex: Male

DRUGS (9)
  1. PRADAXA [Suspect]
     Indication: ATRIAL FIBRILLATION
     Dosage: 220 MG
     Dates: end: 20130108
  2. PRADAXA [Suspect]
  3. VERAPAMIL [Concomitant]
  4. L-THYROXIN [Concomitant]
     Dosage: 125 MCG
  5. PANTOZOL [Concomitant]
     Dosage: 40 MG
  6. BELOC ZOK [Concomitant]
     Dosage: 190 MG
  7. TAMSULOSIN [Concomitant]
     Dosage: 0.4 MG
  8. VITALUX [Concomitant]
     Dosage: 1 ANZ
  9. DELIX [Concomitant]
     Dosage: 2.5 MG

REACTIONS (15)
  - Atrial thrombosis [Unknown]
  - Cerebral infarction [Unknown]
  - Cerebral ischaemia [Unknown]
  - Cerebral ischaemia [Unknown]
  - Cerebral ischaemia [Unknown]
  - Carotid artery disease [Unknown]
  - Sinusitis [Unknown]
  - Cerebral microangiopathy [Unknown]
  - Neurodegenerative disorder [Unknown]
  - General physical health deterioration [Not Recovered/Not Resolved]
  - Dysphagia [Unknown]
  - Urinary tract infection [Unknown]
  - Disorientation [Not Recovered/Not Resolved]
  - Hemiparesis [Not Recovered/Not Resolved]
  - Hallucination [Unknown]
